FAERS Safety Report 5524765-0 (Version None)
Quarter: 2007Q4

REPORT INFORMATION
  Report Type: 
  Country: None (occurrence: None)
  Receive Date: 20071123
  Receipt Date: 20071112
  Transmission Date: 20080405
  Serious: Yes (Hospitalization)
  Sender: FDA-Public Use
  Company Number: PHHO2007ES18877

PATIENT
  Age: 71 Year
  Sex: Male

DRUGS (3)
  1. CYCLOSPORINE [Suspect]
     Indication: RENAL TRANSPLANT
     Dates: start: 20070220, end: 20070626
  2. CELLCEPT [Concomitant]
     Dates: start: 20070312
  3. PREDNISONE TAB [Concomitant]

REACTIONS (5)
  - LYMPHOCELE [None]
  - NEPHRECTOMY [None]
  - PYELONEPHRITIS [None]
  - RENAL NEOPLASM [None]
  - SURGERY [None]
